FAERS Safety Report 7287768 (Version 4)
Quarter: 2013Q1

REPORT INFORMATION
  Report Type: Report from Study
  Country: ES (occurrence: ES)
  Receive Date: 20100222
  Receipt Date: 20130319
  Transmission Date: 20140127
  Serious: No
  Sender: FDA-Public Use
  Company Number: ES-JNJFOC-20100205721

PATIENT
  Sex: Female
  Weight: 52 kg

DRUGS (1)
  1. REMICADE [Suspect]
     Indication: COLITIS ULCERATIVE
     Route: 042
     Dates: start: 20081224, end: 20091113

REACTIONS (2)
  - Eczema [Recovered/Resolved]
  - Infusion related reaction [Recovered/Resolved]
